FAERS Safety Report 7551708-0 (Version None)
Quarter: 2011Q2

REPORT INFORMATION
  Report Type: 
  Country: None (occurrence: None)
  Receive Date: 20110616
  Receipt Date: 20110609
  Transmission Date: 20111010
  Serious: Yes (Other)
  Sender: FDA-Public Use
  Company Number: A0762839A

PATIENT
  Age: 81 Year
  Sex: Male

DRUGS (4)
  1. PROVENTIL [Concomitant]
  2. ALBUTEROL SULFATE AUTOHALER [Concomitant]
  3. LEVAQUIN [Concomitant]
  4. ADVAIR DISKUS 100/50 [Suspect]
     Indication: ASTHMA
     Dosage: 1PUFF TWICE PER DAY
     Route: 055

REACTIONS (4)
  - MACULAR DEGENERATION [None]
  - CHEST DISCOMFORT [None]
  - BRONCHITIS [None]
  - COUGH [None]
